FAERS Safety Report 4852940-7 (Version None)
Quarter: 2005Q4

REPORT INFORMATION
  Report Type: 
  Country: None (occurrence: None)
  Receive Date: 20051214
  Receipt Date: 20051207
  Transmission Date: 20060501
  Serious: Yes (Life-Threatening)
  Sender: FDA-Public Use
  Company Number: FR-RB-2439-2005

PATIENT
  Age: 29 Year
  Sex: Male

DRUGS (1)
  1. BUPRENORPHINE HCL [Suspect]
     Route: 042
     Dates: start: 19990615, end: 19990906

REACTIONS (3)
  - INTENTIONAL DRUG MISUSE [None]
  - LUNG DISORDER [None]
  - PNEUMOTHORAX [None]
